FAERS Safety Report 24708485 (Version 1)
Quarter: 2024Q4

REPORT INFORMATION
  Report Type: Spontaneous
  Country: US (occurrence: US)
  Receive Date: 20241207
  Receipt Date: 20241207
  Transmission Date: 20250115
  Serious: Yes (Other)
  Sender: AUROBINDO
  Company Number: US-AUROBINDO-AUR-APL-2024-059112

PATIENT
  Age: 65 Year
  Sex: Male
  Weight: 97.5 kg

DRUGS (1)
  1. REPAGLINIDE [Suspect]
     Active Substance: DULOXETINE HYDROCHLORIDE\REPAGLINIDE\TICAGRELOR
     Indication: Type 2 diabetes mellitus
     Dosage: UNK
     Route: 065

REACTIONS (5)
  - Hallucination [Unknown]
  - Impaired gastric emptying [Unknown]
  - Gastrointestinal disorder [Unknown]
  - Back pain [Unknown]
  - Sinusitis [Unknown]
